FAERS Safety Report 16199430 (Version 1)
Quarter: 2019Q2

REPORT INFORMATION
  Report Type: Spontaneous
  Country: US (occurrence: US)
  Receive Date: 20190415
  Receipt Date: 20190415
  Transmission Date: 20190711
  Serious: Yes (Other)
  Sender: FDA-Public Use
  Company Number: US-009507513-1904USA004208

PATIENT
  Age: 73 Year
  Sex: Female

DRUGS (1)
  1. TICE BCG [Suspect]
     Active Substance: BACILLUS CALMETTE-GUERIN SUBSTRAIN TICE LIVE ANTIGEN
     Indication: BLADDER CANCER
     Dosage: UNK

REACTIONS (4)
  - Thyroid function test abnormal [Not Recovered/Not Resolved]
  - Night sweats [Not Recovered/Not Resolved]
  - Malignant neoplasm progression [Not Recovered/Not Resolved]
  - Hyperhidrosis [Not Recovered/Not Resolved]
